FAERS Safety Report 23665240 (Version 2)
Quarter: 2024Q2

REPORT INFORMATION
  Report Type: Spontaneous
  Country: CN (occurrence: CN)
  Receive Date: 20240322
  Receipt Date: 20240404
  Transmission Date: 20240716
  Serious: Yes (Hospitalization, Other)
  Sender: FDA-Public Use
  Company Number: CN-009507513-2403CHN006261

PATIENT
  Age: 89 Year
  Sex: Male
  Weight: 65 kg

DRUGS (4)
  1. STEGLATRO [Suspect]
     Active Substance: ERTUGLIFLOZIN PIDOLATE
     Indication: Diabetes mellitus
     Dosage: 5 MG, QD
     Route: 048
     Dates: start: 20231225, end: 20240308
  2. ENTRESTO [Suspect]
     Active Substance: SACUBITRIL\VALSARTAN
     Indication: Hypertension
     Dosage: 100 MG, QD
     Route: 048
     Dates: start: 20231225, end: 20240308
  3. INDOBUFEN [Suspect]
     Active Substance: INDOBUFEN
     Indication: Thrombosis prophylaxis
     Dosage: 0.1 G, BID
     Route: 048
     Dates: start: 20231225, end: 20240308
  4. METFORMIN HYDROCHLORIDE [Concomitant]
     Active Substance: METFORMIN HYDROCHLORIDE
     Indication: Diabetes mellitus
     Dosage: 0.5 G, BID
     Route: 048
     Dates: start: 20231225, end: 20240308

REACTIONS (4)
  - Platelet count decreased [Not Recovered/Not Resolved]
  - Cardiac failure acute [Unknown]
  - Pneumonia [Unknown]
  - Dyschezia [Unknown]

NARRATIVE: CASE EVENT DATE: 20230101
